FAERS Safety Report 8959498 (Version 1)
Quarter: 2012Q4

REPORT INFORMATION
  Report Type: 
  Country: AR (occurrence: AR)
  Receive Date: 20121212
  Receipt Date: 20121212
  Transmission Date: 20130627
  Serious: Yes (Death, Other)
  Sender: FDA-Public Use
  Company Number: AR-RANBAXY-2012RR-62144

PATIENT
  Age: 56 Year
  Sex: Female

DRUGS (16)
  1. VALPROIC ACID [Suspect]
     Indication: GRAND MAL CONVULSION
     Dosage: 15 mg/kg, loading dose
     Route: 042
  2. VALPROIC ACID [Interacting]
     Indication: GRAND MAL CONVULSION
     Dosage: 1 mg/kg, q1h
     Route: 042
  3. VALPROIC ACID [Interacting]
     Indication: GRAND MAL CONVULSION
     Dosage: an additional loading dose
     Route: 042
  4. VANCOMYCIN [Interacting]
     Indication: LUNG INFILTRATION
     Dosage: UNK
     Route: 065
  5. MEROPENEM [Interacting]
     Indication: LUNG INFILTRATION
     Dosage: UNK
     Route: 065
  6. PHENYTOIN [Suspect]
     Indication: GRAND MAL CONVULSION
     Dosage: 100 mg, qid
     Route: 065
  7. IMIPENEM [Suspect]
     Indication: SEPTIC EMBOLUS
     Dosage: UNK
     Route: 065
  8. FLUCONAZOLE [Suspect]
     Indication: SEPTIC EMBOLUS
     Dosage: UNK
     Route: 065
  9. METRONIDAZOLE [Suspect]
     Indication: SEPTIC EMBOLUS
     Dosage: UNK
     Route: 065
  10. PHENOBARBITAL [Concomitant]
     Indication: GRAND MAL CONVULSION
     Dosage: UNK
     Route: 065
  11. LEVETIRACETAM [Concomitant]
     Indication: GRAND MAL CONVULSION
     Dosage: UNK
     Route: 065
  12. CEFTRIAXONE [Concomitant]
     Indication: PRODUCT USED FOR UNKNOWN INDICATION
     Dosage: UNK
     Route: 065
  13. GENTAMICIN [Concomitant]
     Indication: PRODUCT USED FOR UNKNOWN INDICATION
     Dosage: UNK
     Route: 065
  14. VANCOMYCIN [Concomitant]
     Indication: PRODUCT USED FOR UNKNOWN INDICATION
     Dosage: UNK
     Route: 065
  15. METRONIDAZOLE [Concomitant]
     Indication: PRODUCT USED FOR UNKNOWN INDICATION
     Dosage: UNK
     Route: 065
  16. METHYLPREDNISOLONE [Concomitant]
     Indication: ACUTE DISSEMINATED ENCEPHALOMYELITIS
     Dosage: pulse therapy
     Route: 042

REACTIONS (4)
  - Anticonvulsant drug level decreased [Unknown]
  - Status epilepticus [Recovered/Resolved]
  - Depressed level of consciousness [Recovered/Resolved]
  - Drug interaction [Recovered/Resolved]
